FAERS Safety Report 7545896-X (Version None)
Quarter: 2011Q2

REPORT INFORMATION
  Report Type: 
  Country: None (occurrence: None)
  Receive Date: 20110524
  Receipt Date: 20110401
  Transmission Date: 20111010
  Serious: No
  Sender: FDA-Public Use
  Company Number: 028049

PATIENT
  Sex: Male
  Weight: 115.7 kg

DRUGS (1)
  1. CIMZIA [Suspect]
     Indication: CROHN'S DISEASE
     Dosage: (SUBCUTANEOUS)
     Route: 058
     Dates: start: 20101221

REACTIONS (8)
  - POOR QUALITY SLEEP [None]
  - DRUG INEFFECTIVE [None]
  - SKIN DISCOLOURATION [None]
  - INJECTION SITE PAIN [None]
  - MOOD ALTERED [None]
  - FATIGUE [None]
  - DARK CIRCLES UNDER EYES [None]
  - FREQUENT BOWEL MOVEMENTS [None]
